FAERS Safety Report 4711820-8 (Version None)
Quarter: 2005Q2

REPORT INFORMATION
  Report Type: 
  Country: None (occurrence: None)
  Receive Date: 20050629
  Receipt Date: 20050523
  Transmission Date: 20051028
  Serious: No
  Sender: FDA-Public Use
  Company Number: 05P-163-0301165-00

PATIENT
  Age: 57 Year
  Sex: Female
  Weight: 54.4316 kg

DRUGS (10)
  1. HUMIRA [Suspect]
     Indication: RHEUMATOID ARTHRITIS
     Dosage: 40 MG 1 IN 1 WK SUBCUTANEOUS
     Route: 058
     Dates: start: 20040901, end: 20050414
  2. RISEDRONATE SODIUM [Concomitant]
  3. METHOTREXATE SODIUM [Concomitant]
  4. FOLIC ACID [Concomitant]
  5. HYDROCHLOROTHIAZIDE [Concomitant]
  6. PREDNISONE [Concomitant]
  7. FLUOXETINE HCL [Concomitant]
  8. POTASSIUM CHLORIDE [Concomitant]
  9. OMEPRAZOLE [Concomitant]
  10. CALCIUM WITH VITAMIN D [Concomitant]

REACTIONS (2)
  - FATIGUE [None]
  - WEIGHT INCREASED [None]
